FAERS Safety Report 5622169-3 (Version None)
Quarter: 2008Q1

REPORT INFORMATION
  Report Type: 
  Country: None (occurrence: None)
  Receive Date: 20080206
  Receipt Date: 20080123
  Transmission Date: 20080703
  Serious: Yes (Other)
  Sender: FDA-Public Use
  Company Number: PHBS2008KR01357

PATIENT
  Age: 15 Year
  Sex: Female

DRUGS (1)
  1. VISUDYNE [Suspect]
     Indication: HAEMANGIOMA
     Dosage: 6 MG/M^2 ONCE IV
     Route: 042

REACTIONS (5)
  - ARTERIAL DISORDER [None]
  - MACULAR OEDEMA [None]
  - METAMORPHOPSIA [None]
  - RETINAL CYST [None]
  - RETINAL EXUDATES [None]
